FAERS Safety Report 24118849 (Version 1)
Quarter: 2024Q3

REPORT INFORMATION
  Report Type: Spontaneous
  Country: US (occurrence: US)
  Receive Date: 20240722
  Receipt Date: 20240722
  Transmission Date: 20241017
  Serious: Yes (Hospitalization)
  Sender: BAYER
  Company Number: US-BAYER-2024A100952

PATIENT
  Sex: Female

DRUGS (4)
  1. KERENDIA [Suspect]
     Active Substance: FINERENONE
     Dosage: 10 MG
     Dates: start: 20240429
  2. HYDROCHLOROTHIAZIDE [Concomitant]
     Active Substance: HYDROCHLOROTHIAZIDE
  3. BACTRIM [Concomitant]
     Active Substance: SULFAMETHOXAZOLE\TRIMETHOPRIM
  4. MOBIC [Concomitant]
     Active Substance: MELOXICAM

REACTIONS (4)
  - Acute kidney injury [Recovered/Resolved]
  - Malaise [None]
  - Glomerular filtration rate decreased [Recovering/Resolving]
  - Blood creatinine abnormal [None]

NARRATIVE: CASE EVENT DATE: 20240517
